FAERS Safety Report 4511522-7 (Version None)
Quarter: 2004Q4

REPORT INFORMATION
  Report Type: 
  Country: None (occurrence: None)
  Receive Date: 20041129
  Receipt Date: 20040909
  Transmission Date: 20050328
  Serious: No
  Sender: FDA-Public Use
  Company Number: US-BRISTOL-MYERS SQUIBB COMPANY-12698353

PATIENT
  Age: 74 Year
  Sex: Female
  Weight: 59 kg

DRUGS (9)
  1. ABILIFY [Suspect]
     Indication: DEPRESSION
     Route: 048
  2. GEODON [Concomitant]
  3. LEXAPRO [Concomitant]
  4. METOPROLOL [Concomitant]
  5. NORVASC [Concomitant]
  6. PRAVACHOL [Concomitant]
  7. REMERON [Concomitant]
  8. STRATTERA [Concomitant]
  9. XANAX [Concomitant]

REACTIONS (2)
  - PRURITUS [None]
  - RASH [None]
